FAERS Safety Report 15901154 (Version 2)
Quarter: 2019Q1

REPORT INFORMATION
  Report Type: Spontaneous
  Country: US (occurrence: US)
  Receive Date: 20190201
  Receipt Date: 20190220
  Transmission Date: 20190417
  Serious: No
  Sender: FDA-Public Use
  Company Number: US-GILEAD-2019-0388367

PATIENT
  Age: 55 Year
  Sex: Female

DRUGS (6)
  1. VITAMIN E AL [Concomitant]
     Active Substance: TOCOPHEROL
  2. CALCIUM +D3 [Concomitant]
     Active Substance: CALCIUM\CHOLECALCIFEROL
  3. MOVE FREE JOINT STRENGTHENER [Concomitant]
  4. HARVONI [Suspect]
     Active Substance: LEDIPASVIR\SOFOSBUVIR
     Indication: CHRONIC HEPATITIS C
     Dosage: 1 DF
     Route: 048
     Dates: start: 201901
  5. VITAMIN D [Concomitant]
     Active Substance: CHOLECALCIFEROL
  6. OMEGA 3 DOUBLE STRENGTH [Concomitant]

REACTIONS (4)
  - Emotional disorder [Not Recovered/Not Resolved]
  - Dry mouth [Unknown]
  - Vision blurred [Not Recovered/Not Resolved]
  - Depression [Unknown]
